FAERS Safety Report 6970860-9 (Version None)
Quarter: 2010Q3

REPORT INFORMATION
  Report Type: 
  Country: None (occurrence: None)
  Receive Date: 20100908
  Receipt Date: 20100830
  Transmission Date: 20110219
  Serious: Yes (Other)
  Sender: FDA-Public Use
  Company Number: B0666748A

PATIENT
  Sex: Female

DRUGS (3)
  1. PAXIL [Suspect]
     Indication: PRODUCT USED FOR UNKNOWN INDICATION
     Dosage: 30MG PER DAY
     Route: 048
     Dates: start: 20090209
  2. UNKNOWN DRUG [Concomitant]
     Route: 048
  3. MAGNESIUM OXIDE [Concomitant]
     Route: 048

REACTIONS (3)
  - MALAISE [None]
  - METRORRHAGIA [None]
  - NAUSEA [None]
